FAERS Safety Report 7314529-X (Version None)
Quarter: 2011Q1

REPORT INFORMATION
  Report Type: 
  Country: None (occurrence: None)
  Receive Date: 20110225
  Receipt Date: 20101007
  Transmission Date: 20110831
  Serious: No
  Sender: FDA-Public Use
  Company Number: US-MYLANLABS-2010S1017502

PATIENT
  Age: 53 Year
  Sex: Male
  Weight: 109 kg

DRUGS (4)
  1. AMNESTEEM [Suspect]
     Route: 048
     Dates: end: 20100921
  2. TRILIPIX [Concomitant]
  3. AMNESTEEM [Suspect]
     Indication: ACNE CYSTIC
     Route: 048
     Dates: start: 20100701
  4. FISH OIL [Concomitant]

REACTIONS (2)
  - BLOOD CHOLESTEROL INCREASED [None]
  - BLOOD TRIGLYCERIDES INCREASED [None]
